FAERS Safety Report 11124843 (Version 5)
Quarter: 2017Q1

REPORT INFORMATION
  Report Type: Spontaneous
  Country: US (occurrence: US)
  Receive Date: 20150520
  Receipt Date: 20170131
  Transmission Date: 20170428
  Serious: Yes (Hospitalization, Other)
  Sender: FDA-Public Use
  Company Number: US-PFIZER INC-2015163690

PATIENT
  Age: 67 Year
  Sex: Female
  Weight: 58.6 kg

DRUGS (13)
  1. VITAMIN C [Concomitant]
     Active Substance: ASCORBIC ACID
     Dosage: 500 MG, TWO TABLETS TWICE DAILY
  2. PHENERGAN [Concomitant]
     Active Substance: PROMETHAZINE HYDROCHLORIDE
     Indication: NAUSEA
     Dosage: 1/4 TABLET BY MOUTH AS NEEDED
     Route: 048
  3. NEURONTIN [Suspect]
     Active Substance: GABAPENTIN
     Indication: EPILEPSY
     Dosage: 2700 MG, DAILY (300 MG 9 TIMES A DAY)
  4. METOPROLOL. [Concomitant]
     Active Substance: METOPROLOL
     Indication: ATRIAL FIBRILLATION
     Dosage: 25 MG, HALF TABLET AT NIGHT
  5. BIOTIN [Concomitant]
     Active Substance: BIOTIN
     Dosage: UNK
  6. DILANTIN [Suspect]
     Active Substance: PHENYTOIN
     Indication: SEIZURE
     Dosage: 900 MG, DAILY (300 MG TABLET 3 A DAY)
  7. PREVACID [Concomitant]
     Active Substance: LANSOPRAZOLE
     Dosage: UNK
  8. ASPIRIN. [Concomitant]
     Active Substance: ASPIRIN
     Dosage: 81 MG, TWICE DAILY
  9. FAMOTIDINE. [Concomitant]
     Active Substance: FAMOTIDINE
     Indication: IMPERFORATE OESOPHAGUS
     Dosage: 20 MG, TWICE DAILY
  10. MELATONIN [Concomitant]
     Active Substance: MELATONIN
     Indication: SLEEP DISORDER THERAPY
     Dosage: ONE AT BEDTIME
  11. NEURONTIN [Suspect]
     Active Substance: GABAPENTIN
     Indication: SEIZURE
     Dosage: UNK, DAILY (FOUR TO SIX, MAXIMUM PRESCRIBED LIMIT IS 3,600MG A DAY)
     Route: 048
  12. NEURONTIN [Suspect]
     Active Substance: GABAPENTIN
     Indication: PARTIAL SEIZURES
     Dosage: 900 MG, 3X/DAY
  13. METOPROLOL. [Concomitant]
     Active Substance: METOPROLOL
     Indication: CARDIAC DISORDER
     Dosage: UNK, TWICE DAILY

REACTIONS (28)
  - Systemic lupus erythematosus [Unknown]
  - Amnesia [Unknown]
  - Parasitic gastroenteritis [Unknown]
  - Pericardial effusion [Unknown]
  - Gastric disorder [Unknown]
  - Gastrooesophageal reflux disease [Unknown]
  - Malaise [Unknown]
  - Depressed mood [Unknown]
  - Bedridden [Unknown]
  - Pulmonary oedema [Unknown]
  - Insomnia [Unknown]
  - Condition aggravated [Unknown]
  - Dysphonia [Unknown]
  - Depression [Unknown]
  - Atrial fibrillation [Unknown]
  - Cardiomegaly [Unknown]
  - Fall [Unknown]
  - Gastrointestinal wall thickening [Unknown]
  - Neoplasm [Unknown]
  - Crying [Unknown]
  - Hiccups [Unknown]
  - Vomiting [Unknown]
  - Eating disorder [Unknown]
  - Tremor [Unknown]
  - Headache [Unknown]
  - Activities of daily living impaired [Unknown]
  - Vision blurred [Unknown]
  - Nausea [Unknown]

NARRATIVE: CASE EVENT DATE: 201311
